FAERS Safety Report 15831669 (Version 1)
Quarter: 2019Q1

REPORT INFORMATION
  Report Type: Spontaneous
  Country: US (occurrence: US)
  Receive Date: 20190111
  Receipt Date: 20190111
  Transmission Date: 20190417
  Serious: No
  Sender: FDA-Public Use
  Company Number: None

PATIENT
  Age: 63 Year
  Weight: 84 kg

DRUGS (2)
  1. CEFDINIR. [Suspect]
     Active Substance: CEFDINIR
     Route: 048
  2. CEFEPIME [Suspect]
     Active Substance: CEFEPIME HYDROCHLORIDE

REACTIONS (7)
  - Delirium [None]
  - Azotaemia [None]
  - Acute kidney injury [None]
  - Tubulointerstitial nephritis [None]
  - Blood creatinine increased [None]
  - Disorientation [None]
  - Paranoia [None]
